FAERS Safety Report 20447025 (Version 1)
Quarter: 2022Q1

REPORT INFORMATION
  Report Type: Spontaneous
  Country: NL (occurrence: NL)
  Receive Date: 20220209
  Receipt Date: 20220209
  Transmission Date: 20220423
  Serious: Yes (Life-Threatening, Disabling, Other)
  Sender: FDA-Public Use
  Company Number: NL-LRB-00772066

PATIENT
  Age: 22 Year
  Sex: Male
  Weight: 101 kg

DRUGS (3)
  1. QUETIAPINE [Suspect]
     Active Substance: QUETIAPINE
     Indication: Hallucination, auditory
     Dosage: UNK UNK, 3 TIMES A DAY
     Route: 065
     Dates: start: 2020
  2. COMIRNATY [Suspect]
     Active Substance: TOZINAMERAN
     Indication: COVID-19 immunisation
     Dosage: 1 DOSAGE FORM
     Route: 065
     Dates: start: 20210706
  3. CITALOPRAM [Concomitant]
     Active Substance: CITALOPRAM HYDROBROMIDE
     Indication: Product used for unknown indication
     Dosage: 20 MILLIGRAM
     Route: 065

REACTIONS (2)
  - Syncope [Not Recovered/Not Resolved]
  - Symptom recurrence [Not Recovered/Not Resolved]

NARRATIVE: CASE EVENT DATE: 20210706
